FAERS Safety Report 8590059 (Version 3)
Quarter: 2013Q2

REPORT INFORMATION
  Report Type: Spontaneous
  Country: MX (occurrence: MX)
  Receive Date: 20120518
  Receipt Date: 20130503
  Transmission Date: 20140414
  Serious: Yes (Death, Other)
  Sender: FDA-Public Use
  Company Number: ENTC2012-0192

PATIENT
  Age: 75 Year
  Sex: Male

DRUGS (1)
  1. STALEVO [Suspect]
     Indication: PARKINSON^S DISEASE
     Dosage: 3 TABLETS DAILY OF 100/25/200 MG ORAL ; 3 TABLETS DAILY OF 150/37.5/200 MG ORAL
     Route: 048
     Dates: start: 20090525

REACTIONS (5)
  - Myocardial infarction [None]
  - Feeling abnormal [None]
  - Cough [None]
  - Respiratory arrest [None]
  - Product quality issue [None]
